FAERS Safety Report 5066449-1 (Version None)
Quarter: 2006Q3

REPORT INFORMATION
  Report Type: 
  Country: None (occurrence: None)
  Receive Date: 20060717
  Receipt Date: 20051019
  Transmission Date: 20061208
  Serious: Yes (Hospitalization)
  Sender: FDA-Public Use
  Company Number: SGB1-2005-00477

PATIENT
  Age: 78 Year
  Sex: Male

DRUGS (4)
  1. ANAGRELIDE HCL [Suspect]
     Dosage: 4 MG DAILY, ORAL
     Route: 048
     Dates: start: 20050406
  2. BENDROFLUMETHIAZIDE (BENDROFLUMETHIAZIDE) [Concomitant]
  3. AMLODIPINE BESYLATE [Concomitant]
  4. CLOPIDOGREL BISULFATE [Concomitant]

REACTIONS (1)
  - GASTROINTESTINAL HAEMORRHAGE [None]
